FAERS Safety Report 9199257 (Version 2)
Quarter: 2013Q2

REPORT INFORMATION
  Report Type: Spontaneous
  Country: US (occurrence: None)
  Receive Date: 20130325
  Receipt Date: 20130409
  Transmission Date: 20140414
  Serious: Yes (Death, Hospitalization)
  Sender: FDA-Public Use
  Company Number: 2013US-004566

PATIENT
  Age: 65 Year
  Sex: Male
  Weight: 104 kg

DRUGS (14)
  1. OMONTYS [Suspect]
     Indication: NEPHROGENIC ANAEMIA
     Dates: start: 20121123, end: 20121123
  2. CALCITROL (CALCIUM CARBONATE, ERGOCALCIFEROL, RETINOL) [Concomitant]
  3. TYLENOL (PARACETAMOL) [Concomitant]
  4. RENAGEL (SEVELAMER) [Concomitant]
  5. COREG (CARVEDILOL) [Concomitant]
  6. NEPHROVITE (ASCORBIC ACID, BIOTIN, CALCIUM PANTOTHENATE, CYANOCOBALAMIN, FOLIC ACID, NICOTINAMIDE, PYRIDOXINE HYDROCHLORIDE, RIBOFLAVIN, THIAMINE HYDROCHLORIDE) [Concomitant]
  7. DOCUSATE SODIUM (DOCUSATE SODIUM) [Concomitant]
  8. GLIMEPIRIDE (GLIMEPIRIDE) [Concomitant]
  9. NEURONTIN (GABAPENTIN) [Concomitant]
  10. COUMADIN (WARFARIN SODIUM) [Concomitant]
  11. RECOMBIVAX (HEPATITIS B VACCINE) [Concomitant]
  12. ZOCOR (SIMVASTATIN) [Concomitant]
  13. VENOFER [Concomitant]
  14. HECTOROL (DOXERCALCIFEROL) [Concomitant]

REACTIONS (25)
  - Cardiac arrest [None]
  - Cardio-respiratory arrest [None]
  - Dizziness [None]
  - Dyspnoea [None]
  - Agitation [None]
  - Hyperventilation [None]
  - Hyperhidrosis [None]
  - Grand mal convulsion [None]
  - Hypotension [None]
  - Fluid overload [None]
  - Rales [None]
  - Cyanosis [None]
  - Unresponsive to stimuli [None]
  - Postictal state [None]
  - Respiratory distress [None]
  - Lethargy [None]
  - Blood glucose increased [None]
  - White blood cell count increased [None]
  - Pleural effusion [None]
  - Atrial fibrillation [None]
  - Judgement impaired [None]
  - Loss of consciousness [None]
  - Syncope [None]
  - Refusal of treatment by patient [None]
  - Unevaluable event [None]
